FAERS Safety Report 6958023-4 (Version None)
Quarter: 2010Q3

REPORT INFORMATION
  Report Type: 
  Country: None (occurrence: None)
  Receive Date: 20100831
  Receipt Date: 20100825
  Transmission Date: 20110219
  Serious: Yes (Hospitalization, Disabling, Other)
  Sender: FDA-Public Use
  Company Number: US-BRISTOL-MYERS SQUIBB COMPANY-15231566

PATIENT
  Age: 80 Year
  Sex: Female

DRUGS (5)
  1. WARFARIN SODIUM [Suspect]
     Indication: CEREBROVASCULAR ACCIDENT PROPHYLAXIS
     Dosage: 1 DF = 1,2.5 OR 5MG ADJUSTED DOSE.30W 2D 12NOV08 TO 15NOV09;1 Y 4 DAY 22NOV09 TO21JUN10;30W 2 DAYS
     Route: 048
     Dates: start: 20081112, end: 20100621
  2. WARFARIN SODIUM [Suspect]
     Indication: THROMBOSIS PROPHYLAXIS
     Dosage: 1 DF = 1,2.5 OR 5MG ADJUSTED DOSE.30W 2D 12NOV08 TO 15NOV09;1 Y 4 DAY 22NOV09 TO21JUN10;30W 2 DAYS
     Route: 048
     Dates: start: 20081112, end: 20100621
  3. RIVAROXABAN [Suspect]
     Indication: CEREBROVASCULAR ACCIDENT PROPHYLAXIS
     Dosage: 12NOV08 TO 15NOV09;1 YEARS 4 DAY 22NOV09 TO21JUN10;30WEEKS 2 DAYS
     Route: 048
     Dates: start: 20081112, end: 20100621
  4. RIVAROXABAN [Suspect]
     Indication: THROMBOSIS PROPHYLAXIS
     Dosage: 12NOV08 TO 15NOV09;1 YEARS 4 DAY 22NOV09 TO21JUN10;30WEEKS 2 DAYS
     Route: 048
     Dates: start: 20081112, end: 20100621
  5. COUMADIN [Suspect]
     Indication: ANTICOAGULANT THERAPY
     Dosage: 4 WEEKS AND 2 DAYS
     Route: 048
     Dates: start: 20100622, end: 20100721

REACTIONS (2)
  - EXTRADURAL HAEMATOMA [None]
  - PARAPARESIS [None]
